FAERS Safety Report 5167886-7 (Version None)
Quarter: 2006Q4

REPORT INFORMATION
  Report Type: 
  Country: None (occurrence: None)
  Receive Date: 20061208
  Receipt Date: 20061201
  Transmission Date: 20070319
  Serious: Yes (Death)
  Sender: FDA-Public Use
  Company Number: US-JNJFOC-20061200508

PATIENT
  Sex: Female

DRUGS (27)
  1. INFLIXIMAB [Suspect]
     Indication: RHEUMATOID ARTHRITIS
  2. ASPIRIN [Concomitant]
  3. FERROUS SULFATE TAB [Concomitant]
  4. FOLIC ACID [Concomitant]
  5. HYDROCODONE [Concomitant]
  6. MULTI-VITAMIN [Concomitant]
  7. NITRO-DUR [Concomitant]
  8. PLAVIX [Concomitant]
  9. PREDNISONE TAB [Concomitant]
  10. PREMARIN [Concomitant]
  11. PREVACID [Concomitant]
  12. PRINIVIL [Concomitant]
  13. PROZAC [Concomitant]
  14. TENORMIN [Concomitant]
  15. TYLOX [Concomitant]
  16. VALIUM [Concomitant]
  17. VALTREX [Concomitant]
  18. TOPROL-XL [Concomitant]
  19. METHOTREXATE [Concomitant]
  20. ACTONEL [Concomitant]
  21. CALCIUM+D [Concomitant]
  22. ULTRACET [Concomitant]
  23. LIPITOR [Concomitant]
  24. XANAX [Concomitant]
  25. CELEBREX [Concomitant]
  26. XALATAN [Concomitant]
  27. COSOPT [Concomitant]
     Route: 047

REACTIONS (1)
  - MYELODYSPLASTIC SYNDROME UNCLASSIFIABLE [None]
